FAERS Safety Report 7718212-8 (Version None)
Quarter: 2011Q3

REPORT INFORMATION
  Report Type: 
  Country: None (occurrence: None)
  Receive Date: 20110830
  Receipt Date: 20110819
  Transmission Date: 20111222
  Serious: Yes (Other)
  Sender: FDA-Public Use
  Company Number: PHHY2011BR42199

PATIENT
  Age: 33 Year
  Sex: Male

DRUGS (4)
  1. RITALIN [Suspect]
     Dosage: 130 MG, ONE DAY
  2. CLONAZEPAM [Concomitant]
     Dosage: 1 MG, UNK
     Dates: start: 20050101
  3. RITALIN [Suspect]
     Indication: ATTENTION DEFICIT/HYPERACTIVITY DISORDER
     Dosage: REACHED TO DAILY OF 70 MG
  4. RITALIN LA [Suspect]
     Dosage: UNK UKN, UNK

REACTIONS (15)
  - ABDOMINAL PAIN UPPER [None]
  - GASTRITIS [None]
  - CONFUSIONAL STATE [None]
  - HEPATIC ENZYME ABNORMAL [None]
  - IRRITABILITY [None]
  - OVERDOSE [None]
  - GASTRIC ULCER [None]
  - DISTURBANCE IN ATTENTION [None]
  - VISION BLURRED [None]
  - HEPATIC STEATOSIS [None]
  - BLOOD PRESSURE INCREASED [None]
  - DECREASED INTEREST [None]
  - WRONG TECHNIQUE IN DRUG USAGE PROCESS [None]
  - TREMOR [None]
  - DRUG DEPENDENCE [None]
